FAERS Safety Report 7783021-0 (Version None)
Quarter: 2011Q3

REPORT INFORMATION
  Report Type: 
  Country: None (occurrence: None)
  Receive Date: 20110928
  Receipt Date: 20110923
  Transmission Date: 20111222
  Serious: No
  Sender: FDA-Public Use
  Company Number: US-PFIZER INC-2011227010

PATIENT
  Sex: Female

DRUGS (4)
  1. EFFEXOR XR [Suspect]
     Indication: HOT FLUSH
     Dosage: 37.5 MG, UNK
  2. EFFEXOR XR [Suspect]
     Dosage: 75 MG, 2X/DAY
  3. BLACK COHOSH [Suspect]
     Dosage: UNK
  4. EFFEXOR XR [Suspect]
     Dosage: 75 MG, AT NIGHT

REACTIONS (2)
  - HOT FLUSH [None]
  - DRUG INEFFECTIVE [None]
